FAERS Safety Report 8864907 (Version 1)
Quarter: 2012Q4

REPORT INFORMATION
  Report Type: 
  Country: US (occurrence: US)
  Receive Date: 20121024
  Receipt Date: 20121024
  Transmission Date: 20130627
  Serious: No
  Sender: FDA-Public Use
  Company Number: US-AMGEN-USASP2012000139

PATIENT
  Age: 46 Year
  Sex: Female
  Weight: 68.03 kg

DRUGS (4)
  1. ENBREL [Suspect]
     Indication: PRODUCT USED FOR UNKNOWN INDICATION
     Dosage: 50 mg, 2 times/wk
  2. TAMOXIFEN [Concomitant]
     Dosage: 10 mg, UNK
  3. TRIAMTERENE AND HYDROCHLOROTHIAZID [Concomitant]
  4. AMITRIPTYLIN [Concomitant]
     Dosage: 10 mg, UNK

REACTIONS (2)
  - Oropharyngeal pain [Unknown]
  - Nasopharyngitis [Unknown]
